FAERS Safety Report 8149386-5 (Version None)
Quarter: 2012Q1

REPORT INFORMATION
  Report Type: 
  Country: None (occurrence: None)
  Receive Date: 20120218
  Receipt Date: 20111006
  Transmission Date: 20120608
  Serious: No
  Sender: FDA-Public Use
  Company Number: US-ALLERGAN-1113240US

PATIENT
  Age: 23 Year
  Sex: Female

DRUGS (1)
  1. BOTULINUM TOXIN TYPE A [Suspect]
     Indication: HEMIPLEGIA
     Dosage: 200 UNITS, SINGLE
     Route: 030
     Dates: start: 20110419, end: 20110419

REACTIONS (1)
  - THERAPEUTIC RESPONSE DECREASED [None]
